FAERS Safety Report 5196140-2 (Version None)
Quarter: 2007Q1

REPORT INFORMATION
  Report Type: 
  Country: None (occurrence: None)
  Receive Date: 20070102
  Receipt Date: 20061218
  Transmission Date: 20070707
  Serious: Yes (Other)
  Sender: FDA-Public Use
  Company Number: 2006UW15564

PATIENT
  Sex: Female

DRUGS (1)
  1. XYLOCAINE [Suspect]
     Dates: start: 20060626

REACTIONS (4)
  - ANAESTHETIC COMPLICATION [None]
  - HAEMORRHAGE [None]
  - HYPOAESTHESIA [None]
  - INCISION SITE HAEMORRHAGE [None]
